FAERS Safety Report 10219281 (Version 1)
Quarter: 2014Q2

REPORT INFORMATION
  Report Type: Spontaneous
  Country: FR (occurrence: FR)
  Receive Date: 20140605
  Receipt Date: 20140605
  Transmission Date: 20141212
  Serious: Yes (Other)
  Sender: FDA-Public Use
  Company Number: FR-DSJP-DSE-2014-110600

PATIENT
  Sex: 0

DRUGS (1)
  1. AXELER [Suspect]
     Indication: HYPERTENSION
     Route: 048
     Dates: start: 20130507, end: 201405

REACTIONS (7)
  - Gait disturbance [Recovered/Resolved]
  - Pain [Recovered/Resolved]
  - Swelling [Recovered/Resolved]
  - Blood blister [Recovered/Resolved]
  - Constipation [Recovered/Resolved]
  - Drug ineffective [Recovered/Resolved]
  - Headache [Recovered/Resolved]
